FAERS Safety Report 25184658 (Version 3)
Quarter: 2025Q2

REPORT INFORMATION
  Report Type: Spontaneous
  Country: FR (occurrence: FR)
  Receive Date: 20250410
  Receipt Date: 20250527
  Transmission Date: 20250716
  Serious: Yes (Other)
  Sender: JOHNSON AND JOHNSON
  Company Number: FR-AFSSAPS-BR2025000229

PATIENT
  Age: 62 Year
  Sex: Female

DRUGS (2)
  1. BOSENTAN [Suspect]
     Active Substance: BOSENTAN
     Indication: Pulmonary arterial hypertension
     Dosage: 62.5 MG 2 TIMES/DAY
     Route: 048
     Dates: start: 20250217, end: 20250304
  2. BOSENTAN [Suspect]
     Active Substance: BOSENTAN
     Indication: Skin ulcer

REACTIONS (1)
  - Hepatitis acute [Recovered/Resolved]

NARRATIVE: CASE EVENT DATE: 20250304
